FAERS Safety Report 7732436-5 (Version None)
Quarter: 2011Q3

REPORT INFORMATION
  Report Type: 
  Country: None (occurrence: None)
  Receive Date: 20110906
  Receipt Date: 20110824
  Transmission Date: 20111222
  Serious: Yes (Hospitalization)
  Sender: FDA-Public Use
  Company Number: US-US-EMD SERONO, INC.-7079321

PATIENT
  Sex: Male

DRUGS (3)
  1. TYLENOL-500 [Concomitant]
     Indication: PREMEDICATION
  2. IBUPROFEN [Concomitant]
     Indication: PREMEDICATION
  3. REBIF [Suspect]
     Indication: PRODUCT USED FOR UNKNOWN INDICATION
     Route: 058
     Dates: start: 20110517

REACTIONS (6)
  - INJECTION SITE ERYTHEMA [None]
  - PRESYNCOPE [None]
  - HEADACHE [None]
  - DEHYDRATION [None]
  - PYREXIA [None]
  - INJECTION SITE HAEMATOMA [None]
